FAERS Safety Report 17451439 (Version 2)
Quarter: 2020Q1

REPORT INFORMATION
  Report Type: Spontaneous
  Country: US (occurrence: US)
  Receive Date: 20200224
  Receipt Date: 20200311
  Transmission Date: 20200409
  Serious: Yes (Other)
  Sender: FDA-Public Use
  Company Number: US-PFIZER INC-2019347252

PATIENT
  Age: 64 Year
  Sex: Female
  Weight: 74.84 kg

DRUGS (2)
  1. PLAQUENIL [Concomitant]
     Active Substance: HYDROXYCHLOROQUINE SULFATE
     Indication: AUTOIMMUNE ARTHRITIS
     Dosage: ONE TABLET EVERY OTHER DAY, ALTERNATING WITH 2 TABLETS DOSE
     Route: 048
     Dates: start: 20190805
  2. LYRICA [Suspect]
     Active Substance: PREGABALIN
     Indication: FIBROMYALGIA
     Dosage: 450 MG, DAILY (TWO CAPSULES IN THE MORNING AND ONE IN THE EVENING)
     Route: 048

REACTIONS (3)
  - Drug dependence [Unknown]
  - Intentional product use issue [Unknown]
  - Pain [Unknown]
